FAERS Safety Report 22140965 (Version 1)
Quarter: 2023Q1

REPORT INFORMATION
  Report Type: Spontaneous
  Country: US (occurrence: None)
  Receive Date: 20230324
  Receipt Date: 20230324
  Transmission Date: 20230418
  Serious: No
  Sender: FDA-Public Use
  Company Number: None

PATIENT
  Age: 35 Year
  Sex: Male
  Weight: 64.41 kg

DRUGS (40)
  1. BRAFTOVI [Suspect]
     Active Substance: ENCORAFENIB
     Indication: Malignant melanoma
     Dosage: FREQUENCY : DAILY;?
     Route: 048
     Dates: start: 202104
  2. MEKINIST [Suspect]
     Active Substance: TRAMETINIB DIMETHYL SULFOXIDE
     Dosage: FREQUENCY : TWICE A DAY;?
     Route: 048
     Dates: start: 202206
  3. ALBUTEROL [Concomitant]
  4. AMLODIPINE [Concomitant]
     Active Substance: AMLODIPINE BESYLATE
  5. AMOXICILLIN [Concomitant]
     Active Substance: AMOXICILLIN
  6. ATIVAN [Concomitant]
     Active Substance: LORAZEPAM
  7. AUGMENTIN [Concomitant]
     Active Substance: AMOXICILLIN\CLAVULANATE POTASSIUM
  8. AZITHROMYCIN [Concomitant]
  9. BMD MAGIC MOUTHWASH [Concomitant]
  10. CEPHALEXIN [Concomitant]
     Active Substance: CEPHALEXIN
  11. DEXANETHSONE [Concomitant]
  12. DOCUSATE [Concomitant]
     Active Substance: DOCUSATE
  13. FAMOTIDINE [Concomitant]
  14. FENTANYL [Concomitant]
  15. FLUCONAZOLE [Concomitant]
  16. FOLIC ACID [Concomitant]
  17. HYDROCORTISONE [Concomitant]
  18. KEPPTRA [Concomitant]
  19. KLACKS [Concomitant]
  20. LASIX [Concomitant]
     Active Substance: FUROSEMIDE
  21. LEVOFLOXACIN [Concomitant]
  22. LOVENOX [Concomitant]
  23. MAGNESIUM OXIDE [Concomitant]
  24. MARINOL [Concomitant]
     Active Substance: DRONABINOL
  25. MELOXICAM [Concomitant]
  26. MIRALAX [Concomitant]
  27. NARCAN [Concomitant]
  28. NICODERM CQ [Concomitant]
  29. NICOTINE POLACRILEX [Concomitant]
  30. ONDANSETRON [Concomitant]
  31. OXYCODONE [Concomitant]
  32. PANTOPRAZOLE [Concomitant]
  33. PERCOCET [Concomitant]
  34. PRADAXA [Concomitant]
  35. PREDNISONE [Concomitant]
  36. PROMETHAZINE [Concomitant]
  37. SLOW FE [Concomitant]
  38. TRIAMCINOLONE [Concomitant]
  39. VERMURAFENIB [Concomitant]
  40. ZOLOFT [Concomitant]

REACTIONS (2)
  - Malignant melanoma [None]
  - Disease progression [None]
